FAERS Safety Report 23472911 (Version 1)
Quarter: 2024Q1

REPORT INFORMATION
  Report Type: Spontaneous
  Country: US (occurrence: US)
  Receive Date: 20240203
  Receipt Date: 20240203
  Transmission Date: 20240409
  Serious: Yes (Other)
  Sender: FDA-Public Use
  Company Number: US-HORIZON THERAPEUTICS-HZN-2023-007457

PATIENT

DRUGS (1)
  1. TEPEZZA [Suspect]
     Active Substance: TEPROTUMUMAB-TRBW
     Indication: Endocrine ophthalmopathy
     Route: 042

REACTIONS (6)
  - Deafness [Unknown]
  - Crohn^s disease [Unknown]
  - Tinnitus [Unknown]
  - Alopecia [Unknown]
  - Irritable bowel syndrome [Unknown]
  - Dry eye [Not Recovered/Not Resolved]
